FAERS Safety Report 4603319-4 (Version None)
Quarter: 2005Q1

REPORT INFORMATION
  Report Type: 
  Country: None (occurrence: None)
  Receive Date: 20050309
  Receipt Date: 20050302
  Transmission Date: 20050727
  Serious: Yes (Other)
  Sender: FDA-Public Use
  Company Number: US-MERCK-0503USA00866

PATIENT
  Age: 31 Year
  Sex: Male

DRUGS (26)
  1. PENTAMIDINE ISETHIONATE [Suspect]
     Route: 065
  2. ERYTHROMYCIN [Suspect]
     Route: 065
  3. RIFABUTIN [Concomitant]
     Route: 065
  4. ZIDOVUDINE [Concomitant]
     Route: 065
  5. STAVUDINE [Concomitant]
     Route: 065
  6. LAMIVUDINE [Concomitant]
     Route: 065
  7. CLARITHROMYCIN [Suspect]
     Route: 065
  8. AZITHROMYCIN [Suspect]
     Route: 065
  9. CRIXIVAN [Suspect]
     Indication: HIV INFECTION
     Route: 048
  10. NELFINAVIR MESYLATE [Concomitant]
     Route: 065
  11. CEFAZOLIN [Concomitant]
     Route: 065
  12. AMIKACIN [Concomitant]
     Route: 065
  13. SULFAMETHOXAZOLE AND TRIMETHOPRIM [Concomitant]
     Route: 065
  14. ETHAMBUTOL HYDROCHLORIDE [Concomitant]
     Route: 065
  15. DAPSONE [Concomitant]
     Route: 065
  16. CLOFAZIMINE [Concomitant]
     Route: 065
  17. CLINDAMYCIN [Concomitant]
     Route: 065
  18. CIPROFLOXACIN [Concomitant]
     Route: 065
  19. FLUCONAZOLE [Concomitant]
     Route: 065
  20. METRONIDAZOLE [Concomitant]
     Route: 065
  21. HEPARIN [Concomitant]
     Route: 065
  22. ALBUTEROL [Concomitant]
     Route: 065
  23. LORAZEPAM [Concomitant]
     Route: 065
  24. PREDNISONE [Concomitant]
     Route: 065
  25. METOPROLOL [Concomitant]
     Route: 065
  26. HYDROMORPHONE HYDROCHLORIDE [Concomitant]
     Route: 065

REACTIONS (2)
  - TORSADE DE POINTES [None]
  - VENTRICULAR TACHYCARDIA [None]
